FAERS Safety Report 8858105 (Version 1)
Quarter: 2012Q4

REPORT INFORMATION
  Report Type: 
  Country: US (occurrence: US)
  Receive Date: 20121024
  Receipt Date: 20121024
  Transmission Date: 20130627
  Serious: No
  Sender: FDA-Public Use
  Company Number: US-AMGEN-USASP2011064801

PATIENT
  Age: 60 Year
  Sex: Female
  Weight: 90.7 kg

DRUGS (13)
  1. ENBREL [Suspect]
     Indication: PRODUCT USED FOR UNKNOWN INDICATION
     Dosage: 50 mg, qwk
     Route: 058
  2. FOLIC ACID [Concomitant]
     Dosage: 1 mg, UNK
     Route: 048
  3. PREDNISONE [Concomitant]
     Dosage: 5 mg, UNK
     Route: 048
  4. SIMVASTATIN [Concomitant]
     Dosage: 20 mg, UNK
     Route: 048
  5. NAPROXEN SOD [Concomitant]
     Dosage: 550 mg, UNK
     Route: 048
  6. METHOTREXATE [Concomitant]
     Dosage: 2.5 mg, UNK
  7. FISH OIL NATURE MADE [Concomitant]
     Dosage: UNK
     Route: 048
  8. VITAMIN D /00107901/ [Concomitant]
     Dosage: UNK
     Route: 048
  9. MULTIVITAMIN                       /00097801/ [Concomitant]
     Dosage: UNK
     Route: 048
  10. ZANTAC 150 MAXIMUM STRENGTH [Concomitant]
     Dosage: 150 mg, UNK
     Route: 048
  11. PREVACID [Concomitant]
     Dosage: 30 mg, UNK
     Route: 048
  12. LEVAQUIN [Concomitant]
     Dosage: 500 mg, UNK
     Route: 048
  13. FLONASE [Concomitant]
     Dosage: UNK

REACTIONS (1)
  - Sinusitis [Unknown]
